FAERS Safety Report 4310944-7 (Version None)
Quarter: 2004Q1

REPORT INFORMATION
  Report Type: 
  Country: None (occurrence: None)
  Receive Date: 20040302
  Receipt Date: 20040302
  Transmission Date: 20041129
  Serious: Yes (Life-Threatening, Hospitalization)
  Sender: FDA-Public Use
  Company Number: None

PATIENT
  Age: 84 Year
  Sex: Male

DRUGS (5)
  1. PHENOBARBITAL TAB [Suspect]
     Indication: EPILEPSY
     Dosage: 60 MG , PO BID
     Route: 048
     Dates: start: 19940101
  2. GALANTAMINE [Concomitant]
  3. QUETIAPINE [Concomitant]
  4. VALPROIC ACID [Concomitant]
  5. WARFARIN [Concomitant]

REACTIONS (8)
  - COMMUNICATION DISORDER [None]
  - DRUG LEVEL INCREASED [None]
  - HYPOGLYCAEMIA [None]
  - HYPOTHERMIA [None]
  - HYPOTHYROIDISM [None]
  - MALNUTRITION [None]
  - MENTAL IMPAIRMENT [None]
  - MENTAL STATUS CHANGES [None]
